FAERS Safety Report 18927847 (Version 2)
Quarter: 2021Q1

REPORT INFORMATION
  Report Type: Spontaneous
  Country: US (occurrence: US)
  Receive Date: 20210223
  Receipt Date: 20210320
  Transmission Date: 20210420
  Serious: Yes (Hospitalization)
  Sender: FDA-Public Use
  Company Number: US-ASTRAZENECA-2021A060497

PATIENT
  Age: 85 Year
  Sex: Female
  Weight: 45.4 kg

DRUGS (4)
  1. NATEGLINIDE. [Concomitant]
     Active Substance: NATEGLINIDE
     Indication: TYPE 2 DIABETES MELLITUS
     Route: 048
     Dates: start: 2020
  2. BYDUREON [Suspect]
     Active Substance: EXENATIDE
     Indication: TYPE 2 DIABETES MELLITUS
     Route: 058
  3. BYDUREON BCISE [Suspect]
     Active Substance: EXENATIDE
     Indication: TYPE 2 DIABETES MELLITUS
     Route: 058
     Dates: start: 202012
  4. BYDUREON [Suspect]
     Active Substance: EXENATIDE
     Indication: TYPE 2 DIABETES MELLITUS
     Route: 058
     Dates: end: 202012

REACTIONS (11)
  - Blood glucose increased [Unknown]
  - Memory impairment [Not Recovered/Not Resolved]
  - Intentional device misuse [Unknown]
  - Wrong technique in device usage process [Unknown]
  - Blood glucose decreased [Recovered/Resolved]
  - Diabetic complication [Recovered/Resolved]
  - Drug dose omission by device [Unknown]
  - Device leakage [Unknown]
  - Incorrect dose administered by device [Unknown]
  - Incoherent [Recovered/Resolved]
  - Device delivery system issue [Unknown]

NARRATIVE: CASE EVENT DATE: 2020
